FAERS Safety Report 4644676-2 (Version None)
Quarter: 2005Q2

REPORT INFORMATION
  Report Type: 
  Country: None (occurrence: None)
  Receive Date: 20050422
  Receipt Date: 20050412
  Transmission Date: 20051028
  Serious: Yes (Hospitalization)
  Sender: FDA-Public Use
  Company Number: US015084

PATIENT
  Age: 50 Year

DRUGS (2)
  1. GABITRIL [Suspect]
     Indication: SCHIZOPHRENIA
     Dosage: 16 MG QD ORAL
     Route: 048
     Dates: start: 20020101, end: 20020101
  2. CLOZARIL [Concomitant]

REACTIONS (6)
  - ABNORMAL BEHAVIOUR [None]
  - CONFUSIONAL STATE [None]
  - DEPRESSED LEVEL OF CONSCIOUSNESS [None]
  - GRAND MAL CONVULSION [None]
  - SPEECH DISORDER [None]
  - STATUS EPILEPTICUS [None]
